FAERS Safety Report 9114233 (Version 1)
Quarter: 2013Q1

REPORT INFORMATION
  Report Type: Spontaneous
  Country: JP (occurrence: JP)
  Receive Date: 20130208
  Receipt Date: 20130208
  Transmission Date: 20140127
  Serious: Yes (Life-Threatening, Hospitalization, Other)
  Sender: FDA-Public Use
  Company Number: JP-PFIZER INC-2013042609

PATIENT
  Age: 51 Year
  Sex: Male

DRUGS (20)
  1. OLMESARTAN MEDOXOMIL [Suspect]
     Indication: HYPERTENSION
     Dosage: UNK MG, UNK
     Route: 048
     Dates: start: 20120123, end: 20130121
  2. AMLODIPINE BESILATE [Suspect]
     Indication: HYPERTENSION
     Dosage: 5 MG, 1X/DAY
     Route: 065
     Dates: end: 20121030
  3. AMLODIPINE BESILATE [Suspect]
     Dosage: 10 MG, 1X/DAY
     Route: 065
     Dates: start: 20121031, end: 20130121
  4. ARTIST [Suspect]
     Indication: CARDIAC FAILURE CHRONIC
     Dosage: 5 MG, DAILY
     Route: 048
     Dates: start: 20110822, end: 20130121
  5. BAYASPIRIN [Suspect]
     Dosage: UNK
     Route: 065
     Dates: end: 20130121
  6. PROTECADIN [Suspect]
     Indication: GASTRIC ULCER
     Dosage: UNK
     Route: 065
     Dates: start: 20100908, end: 20130121
  7. ALLOPURINOL [Suspect]
     Indication: HYPERURICAEMIA
     Dosage: UNK
     Route: 065
     Dates: end: 20130121
  8. CORINAEL [Suspect]
     Indication: HYPERTENSION
     Dosage: UNK
     Route: 065
     Dates: start: 20110822, end: 20130121
  9. WYTENSIN [Suspect]
     Indication: HYPERTENSION
     Dosage: 4 MG, 1X/DAY
     Route: 065
     Dates: end: 20121202
  10. WYTENSIN [Suspect]
     Dosage: 8 MG, 1X/DAY
     Route: 065
     Dates: start: 20121203, end: 20130121
  11. REGPARA [Suspect]
     Indication: HYPERPARATHYROIDISM
     Dosage: 75 MG, 1X/DAY
     Route: 065
     Dates: start: 20080723, end: 20121127
  12. REGPARA [Suspect]
     Dosage: 100 MG, 1X/DAY
     Route: 065
     Dates: start: 20121128, end: 20130111
  13. CALTAN [Concomitant]
     Indication: HYPERPHOSPHATAEMIA
     Dosage: UNK
     Route: 065
     Dates: end: 20130121
  14. CHOLEBINE [Concomitant]
     Indication: HYPERLIPIDAEMIA
     Dosage: UNK
     Route: 065
     Dates: start: 20050518, end: 20130121
  15. ARGAMATE [Concomitant]
     Indication: RENAL FAILURE CHRONIC
     Dosage: UNK
     Route: 065
     Dates: start: 20070523, end: 20130121
  16. FOSRENOL [Concomitant]
     Indication: HYPERPHOSPHATAEMIA
     Dosage: UNK
     Route: 065
     Dates: start: 20090724, end: 20130121
  17. RENAGEL [Concomitant]
     Indication: HYPERPHOSPHATAEMIA
     Dosage: UNK
     Route: 065
     Dates: start: 20030903, end: 20130121
  18. OXAROL [Concomitant]
     Indication: HYPERPARATHYROIDISM
     Dosage: 2.5 UG, 3X/WEEK
     Route: 042
     Dates: start: 20030123, end: 20130121
  19. MIRCERA [Concomitant]
     Indication: RENAL FAILURE CHRONIC
     Dosage: 150 UG, MONTHLY
     Route: 042
     Dates: start: 20111212, end: 20130121
  20. CRAVIT [Concomitant]
     Dosage: 250 MG, 1X/DAY
     Route: 048
     Dates: start: 20121221, end: 20121224

REACTIONS (11)
  - Thrombocytopenia [Recovering/Resolving]
  - Eosinophilia [Recovered/Resolved]
  - Hepatitis cholestatic [Recovered/Resolved]
  - Rash [None]
  - Pyrexia [None]
  - Hypersensitivity [None]
  - Megakaryocytes increased [None]
  - Lymphocyte stimulation test positive [None]
  - Idiopathic thrombocytopenic purpura [None]
  - Drug clearance decreased [None]
  - Metabolic disorder [None]
